FAERS Safety Report 14442798 (Version 2)
Quarter: 2019Q1

REPORT INFORMATION
  Report Type: Spontaneous
  Country: US (occurrence: US)
  Receive Date: 20180125
  Receipt Date: 20190204
  Transmission Date: 20190417
  Serious: No
  Sender: FDA-Public Use
  Company Number: US-ABBVIE-17K-163-2016016-00

PATIENT
  Sex: Female

DRUGS (1)
  1. HUMIRA [Suspect]
     Active Substance: ADALIMUMAB
     Indication: PRODUCT USED FOR UNKNOWN INDICATION
     Route: 058

REACTIONS (11)
  - Renal function test abnormal [Recovering/Resolving]
  - Diabetes mellitus [Unknown]
  - Asthenia [Unknown]
  - Liver disorder [Recovered/Resolved]
  - Gluten sensitivity [Unknown]
  - Hepatic steatosis [Unknown]
  - Hypotension [Recovering/Resolving]
  - Hepatic enzyme increased [Unknown]
  - Presyncope [Unknown]
  - Blood cholesterol abnormal [Recovering/Resolving]
  - Glycosylated haemoglobin abnormal [Recovering/Resolving]
